FAERS Safety Report 9730083 (Version 2)
Quarter: 2013Q4

REPORT INFORMATION
  Report Type: Spontaneous
  Country: US (occurrence: US)
  Receive Date: 20131204
  Receipt Date: 20131204
  Transmission Date: 20140711
  Serious: Yes (Hospitalization)
  Sender: FDA-Public Use
  Company Number: US-BAXTER-2013BAX046780

PATIENT
  Sex: Female
  Weight: 51.71 kg

DRUGS (2)
  1. ARALAST NP [Suspect]
     Indication: ALPHA-1 ANTI-TRYPSIN DEFICIENCY
     Route: 042
     Dates: end: 201307
  2. ZEMAIRA [Concomitant]
     Indication: ALPHA-1 ANTI-TRYPSIN DEFICIENCY
     Dates: start: 2002

REACTIONS (1)
  - Chronic obstructive pulmonary disease [Unknown]
